FAERS Safety Report 16674292 (Version 3)
Quarter: 2019Q3

REPORT INFORMATION
  Report Type: Spontaneous
  Country: DE (occurrence: DE)
  Receive Date: 20190806
  Receipt Date: 20190925
  Transmission Date: 20191004
  Serious: Yes (Hospitalization, Other)
  Sender: FDA-Public Use
  Company Number: DE-JNJFOC-20190804713

PATIENT
  Age: 33 Year
  Sex: Male

DRUGS (14)
  1. IBUPROFEN. [Suspect]
     Active Substance: IBUPROFEN
     Indication: PRODUCT USED FOR UNKNOWN INDICATION
     Dosage: UNK (NK MG)
     Route: 065
     Dates: start: 20180407
  2. FURADANTIN [Suspect]
     Active Substance: NITROFURANTOIN
     Indication: PRODUCT USED FOR UNKNOWN INDICATION
     Dosage: 100 MG, Z (4 TABLETS)
     Route: 065
     Dates: start: 20180310, end: 20180315
  3. CEFUROXIME. [Suspect]
     Active Substance: CEFUROXIME
     Indication: PRODUCT USED FOR UNKNOWN INDICATION
     Dosage: 500 MG, Z (12 TABLETS)
     Route: 065
     Dates: start: 20180327, end: 20180401
  4. CEFUROXIME. [Suspect]
     Active Substance: CEFUROXIME
     Dosage: 500 MG, Z (12 TABLETS)
     Route: 065
     Dates: start: 20180320, end: 20180326
  5. MAGNESIUM ASPARTATE DIHYDRATE [Suspect]
     Active Substance: MAGNESIUM ASPARTATE DIHYDRATE
     Indication: PRODUCT USED FOR UNKNOWN INDICATION
     Dosage: UNK (NK MG)
     Route: 065
  6. CIPROFLOXACIN. [Suspect]
     Active Substance: CIPROFLOXACIN
     Indication: PRODUCT USED FOR UNKNOWN INDICATION
     Dosage: 250 MG, Z (10 TABLETS)
     Route: 065
     Dates: start: 20180116, end: 20180121
  7. CEFUROXIME. [Suspect]
     Active Substance: CEFUROXIME
     Dosage: 10 TABLETS, NK MG
     Route: 065
     Dates: start: 20171231, end: 20180105
  8. METAMIZOLE [Suspect]
     Active Substance: METAMIZOLE
     Indication: PRODUCT USED FOR UNKNOWN INDICATION
     Dosage: 500 MG, UNK (4 TABLETS)
     Route: 065
     Dates: start: 20180108, end: 20180111
  9. DYSURGAL [Concomitant]
     Indication: PRODUCT USED FOR UNKNOWN INDICATION
     Dosage: 0.5 MG, UNK (4 TABLETS)
     Route: 065
     Dates: start: 20180108, end: 20181111
  10. FURADANTIN [Suspect]
     Active Substance: NITROFURANTOIN
     Dosage: 100 MG, Z (20 TABLETS)
     Route: 065
     Dates: start: 20180210, end: 20180220
  11. TAMSULOSIN [Concomitant]
     Active Substance: TAMSULOSIN
     Indication: PRODUCT USED FOR UNKNOWN INDICATION
     Dosage: UNK (NK MG)
     Route: 065
     Dates: start: 2017, end: 20180105
  12. CIPROFLOXACIN. [Suspect]
     Active Substance: CIPROFLOXACIN
     Dosage: 250 MG, Z (9 TABLETS )
     Route: 065
     Dates: start: 20171227, end: 20171231
  13. CIPROFLOXACIN. [Suspect]
     Active Substance: CIPROFLOXACIN
     Dosage: 500 MG, Z (10 TABLETS)
     Route: 065
     Dates: start: 20180205, end: 20180209
  14. LORAZEPAM. [Concomitant]
     Active Substance: LORAZEPAM
     Indication: PRODUCT USED FOR UNKNOWN INDICATION
     Dosage: UNK (NK MG)
     Route: 065
     Dates: start: 20180429

REACTIONS (5)
  - Suicidal ideation [Unknown]
  - Muscular weakness [Unknown]
  - Arthralgia [Unknown]
  - Hallucination [Unknown]
  - Fatigue [Unknown]
